FAERS Safety Report 26169947 (Version 1)
Quarter: 2025Q4

REPORT INFORMATION
  Report Type: Spontaneous
  Country: CN (occurrence: CN)
  Receive Date: 20251217
  Receipt Date: 20251217
  Transmission Date: 20260117
  Serious: Yes (Death, Hospitalization, Other)
  Sender: AMGEN
  Company Number: CN-AMGEN-CHNSP2025244963

PATIENT

DRUGS (1)
  1. EVOLOCUMAB [Suspect]
     Active Substance: EVOLOCUMAB
     Indication: Low density lipoprotein increased
     Dosage: UNK
     Route: 065

REACTIONS (10)
  - Cardiac death [Fatal]
  - Angina unstable [Unknown]
  - Cardiac failure [Unknown]
  - Myocardial infarction [Unknown]
  - Cerebrovascular accident [Unknown]
  - Blood creatinine increased [Unknown]
  - Liver function test abnormal [Unknown]
  - Cardiovascular disorder [Unknown]
  - Revascularisation procedure [Unknown]
  - Haemorrhage [Unknown]
